FAERS Safety Report 12426068 (Version 4)
Quarter: 2016Q3

REPORT INFORMATION
  Report Type: Report from Study
  Country: US (occurrence: US)
  Receive Date: 20160601
  Receipt Date: 20160824
  Transmission Date: 20161109
  Serious: Yes (Hospitalization)
  Sender: FDA-Public Use
  Company Number: US-JNJFOC-20160511106

PATIENT
  Age: 71 Year
  Sex: Male

DRUGS (27)
  1. IMBRUVICA [Suspect]
     Active Substance: IBRUTINIB
     Indication: CHRONIC LYMPHOCYTIC LEUKAEMIA
     Route: 048
     Dates: start: 20160303
  2. PROTONIX [Concomitant]
     Active Substance: PANTOPRAZOLE SODIUM
  3. MOBIC [Concomitant]
     Active Substance: MELOXICAM
  4. SPIRONOLACTONE. [Concomitant]
     Active Substance: SPIRONOLACTONE
  5. OXYCODONE [Concomitant]
     Active Substance: OXYCODONE
  6. DOXYCYCLINE. [Concomitant]
     Active Substance: DOXYCYCLINE
  7. FINASTERIDE. [Concomitant]
     Active Substance: FINASTERIDE
  8. SYMBICORT [Concomitant]
     Active Substance: BUDESONIDE\FORMOTEROL FUMARATE DIHYDRATE
  9. FOLIC ACID. [Concomitant]
     Active Substance: FOLIC ACID
  10. METOPROLOL. [Concomitant]
     Active Substance: METOPROLOL
  11. COMPAZINE [Concomitant]
     Active Substance: PROCHLORPERAZINE MALEATE
  12. FISH OIL [Concomitant]
     Active Substance: FISH OIL
  13. BACTROBAN [Concomitant]
     Active Substance: MUPIROCIN\MUPIROCIN CALCIUM
  14. CRESTOR [Concomitant]
     Active Substance: ROSUVASTATIN CALCIUM
  15. IMBRUVICA [Suspect]
     Active Substance: IBRUTINIB
     Indication: CHRONIC LYMPHOCYTIC LEUKAEMIA
     Route: 048
     Dates: start: 20140704, end: 20160218
  16. IMBRUVICA [Suspect]
     Active Substance: IBRUTINIB
     Indication: CHRONIC LYMPHOCYTIC LEUKAEMIA
     Route: 048
     Dates: start: 2016
  17. AMIODARONE [Suspect]
     Active Substance: AMIODARONE
     Indication: PRODUCT USED FOR UNKNOWN INDICATION
     Dosage: EVERY OTHER DAY
  18. VALTREX [Concomitant]
     Active Substance: VALACYCLOVIR HYDROCHLORIDE
  19. POTASSIUM [Concomitant]
     Active Substance: POTASSIUM
  20. ALBUTEROL. [Concomitant]
     Active Substance: ALBUTEROL
  21. NITROGLYCERIN. [Concomitant]
     Active Substance: NITROGLYCERIN
  22. ASPIRIN. [Concomitant]
     Active Substance: ASPIRIN
  23. LEVAQUIN [Concomitant]
     Active Substance: LEVOFLOXACIN
  24. LOSARTAN. [Concomitant]
     Active Substance: LOSARTAN
  25. LANSOPRAZOLE. [Concomitant]
     Active Substance: LANSOPRAZOLE
  26. IMBRUVICA [Suspect]
     Active Substance: IBRUTINIB
     Indication: CHRONIC LYMPHOCYTIC LEUKAEMIA
     Route: 048
     Dates: start: 2016
  27. DIGOXIN. [Concomitant]
     Active Substance: DIGOXIN

REACTIONS (10)
  - Off label use [Not Recovered/Not Resolved]
  - Atrial fibrillation [Recovering/Resolving]
  - Weight decreased [Not Recovered/Not Resolved]
  - Asthenia [Unknown]
  - Decreased appetite [Unknown]
  - Nausea [Unknown]
  - Blood creatinine increased [Unknown]
  - Coronary artery disease [Unknown]
  - Product use issue [Not Recovered/Not Resolved]
  - Lymphocyte count decreased [Unknown]

NARRATIVE: CASE EVENT DATE: 201601
